FAERS Safety Report 6678893-7 (Version None)
Quarter: 2010Q2

REPORT INFORMATION
  Report Type: 
  Country: None (occurrence: None)
  Receive Date: 20100413
  Receipt Date: 20100406
  Transmission Date: 20101027
  Serious: Yes (Hospitalization)
  Sender: FDA-Public Use
  Company Number: FR-ASTRAZENECA-2010SE15164

PATIENT
  Age: 68 Year
  Sex: Male

DRUGS (3)
  1. NEXIUM [Suspect]
     Route: 048
  2. IMIPENEM AND CILASTATIN [Suspect]
     Dates: start: 20100203, end: 20100208
  3. AMIKIN [Concomitant]
     Dates: start: 20100203

REACTIONS (1)
  - TOXIC SKIN ERUPTION [None]
